FAERS Safety Report 23597094 (Version 1)
Quarter: 2024Q1

REPORT INFORMATION
  Report Type: Report from Study
  Country: CA (occurrence: None)
  Receive Date: 20240305
  Receipt Date: 20240305
  Transmission Date: 20240410
  Serious: Yes (Other)
  Sender: FDA-Public Use
  Company Number: 2024A054464

PATIENT
  Age: 29364 Day
  Sex: Male

DRUGS (1)
  1. TAGRISSO [Suspect]
     Active Substance: OSIMERTINIB
     Indication: Non-small cell lung cancer stage II
     Route: 048
     Dates: start: 20220420

REACTIONS (3)
  - Cerebrovascular accident [Unknown]
  - Diplopia [Unknown]
  - Balance disorder [Unknown]

NARRATIVE: CASE EVENT DATE: 20231225
